FAERS Safety Report 4338670-9 (Version None)
Quarter: 2004Q2

REPORT INFORMATION
  Report Type: 
  Country: None (occurrence: None)
  Receive Date: 20040409
  Receipt Date: 20040327
  Transmission Date: 20050107
  Serious: Yes (Other)
  Sender: FDA-Public Use
  Company Number: 2004021501

PATIENT
  Age: 35 Year
  Sex: Male
  Weight: 84.8226 kg

DRUGS (7)
  1. NEURONTIN [Suspect]
     Indication: MIGRAINE
     Dosage: 300 MG (DAILY), ORAL
     Route: 048
     Dates: start: 20031225
  2. NEURONTIN [Suspect]
     Indication: NEUROPATHY
     Dosage: 300 MG (DAILY), ORAL
     Route: 048
     Dates: start: 20031225
  3. ESCITALOPRAM (ESCITALOPRAM) [Suspect]
     Indication: ILL-DEFINED DISORDER
     Dosage: 20 MG (DAILY),
  4. ALLEGRA-D (FEXOFENADINE, PSEUDOEPHEDRINE HYDROCHLORIDE) [Concomitant]
  5. PROPACET (DEXTROPROPOXYPHENE NAPSILATE, PARACETAMOL) [Concomitant]
  6. PANTOPRAZOLE (PANTOPRAZOLE) [Concomitant]
  7. DOCUSATE (DOCUSATE) [Concomitant]

REACTIONS (8)
  - BALANCE DISORDER [None]
  - CONDITION AGGRAVATED [None]
  - DEPRESSION [None]
  - DRUG INTERACTION [None]
  - FALL [None]
  - MIGRAINE [None]
  - NIGHTMARE [None]
  - SUICIDE ATTEMPT [None]
